FAERS Safety Report 8908259 (Version 1)
Quarter: 2012Q4

REPORT INFORMATION
  Report Type: 
  Country: US (occurrence: US)
  Receive Date: 20121113
  Receipt Date: 20121113
  Transmission Date: 20130627
  Serious: No
  Sender: FDA-Public Use
  Company Number: US-AMGEN-USASP2012040876

PATIENT
  Sex: Male

DRUGS (2)
  1. ARANESP [Suspect]
     Indication: ANAEMIA
     Dosage: UNK UNK, q2wk
     Dates: start: 20120411
  2. ARANESP [Suspect]
     Dosage: UNK UNK, qwk

REACTIONS (4)
  - Muscular weakness [Unknown]
  - Enuresis [Unknown]
  - Red blood cell count decreased [Unknown]
  - Fall [Unknown]
